FAERS Safety Report 14629615 (Version 1)
Quarter: 2018Q1

REPORT INFORMATION
  Report Type: Spontaneous
  Country: US (occurrence: US)
  Receive Date: 20180312
  Receipt Date: 20180312
  Transmission Date: 20180509
  Serious: Yes (Disabling, Other)
  Sender: FDA-Public Use
  Company Number: None

PATIENT
  Age: 62 Year
  Sex: Female
  Weight: 90 kg

DRUGS (7)
  1. SUBOXONE [Suspect]
     Active Substance: BUPRENORPHINE HYDROCHLORIDE\NALOXONE HYDROCHLORIDE
     Indication: PAIN
     Dosage: ?          QUANTITY:1 STRIP;?
     Route: 060
     Dates: start: 20180306, end: 20180312
  2. VITAMIN D3 [Concomitant]
     Active Substance: CHOLECALCIFEROL
  3. LUTEIN [Concomitant]
     Active Substance: LUTEIN
  4. ZEAXANTHIN [Concomitant]
     Active Substance: ZEAXANTHIN
  5. SUBOXONE [Suspect]
     Active Substance: BUPRENORPHINE HYDROCHLORIDE\NALOXONE HYDROCHLORIDE
     Indication: PAIN
     Route: 060
  6. ACIDOPHILUS [Concomitant]
     Active Substance: LACTOBACILLUS ACIDOPHILUS
  7. SERTRALINE [Concomitant]
     Active Substance: SERTRALINE HYDROCHLORIDE

REACTIONS (10)
  - Oropharyngeal pain [None]
  - Neck pain [None]
  - Swollen tongue [None]
  - Pain [None]
  - Vein disorder [None]
  - Malaise [None]
  - Tongue discolouration [None]
  - Tongue disorder [None]
  - Lymph node pain [None]
  - Glossodynia [None]

NARRATIVE: CASE EVENT DATE: 20180309
